FAERS Safety Report 5164262-8 (Version None)
Quarter: 2006Q4

REPORT INFORMATION
  Report Type: 
  Country: None (occurrence: None)
  Receive Date: 20060918
  Receipt Date: 20051103
  Transmission Date: 20070319
  Serious: Yes (Other)
  Sender: FDA-Public Use
  Company Number: US-JNJFOC-20051101799

PATIENT
  Age: 9 Year
  Sex: Male
  Weight: 41.7309 kg

DRUGS (2)
  1. TOPAMAX [Suspect]
     Indication: EPILEPSY
     Dosage: 100 + 50 MG, 2 IN 1 DAY, ORAL - SEE IMAGE
     Route: 048
     Dates: start: 20051102, end: 20051103
  2. TOPAMAX [Suspect]
     Indication: EPILEPSY
     Dosage: 100 + 50 MG, 2 IN 1 DAY, ORAL - SEE IMAGE
     Route: 048
     Dates: start: 20051103

REACTIONS (5)
  - CONFUSIONAL STATE [None]
  - DYSARTHRIA [None]
  - PSYCHOMOTOR SKILLS IMPAIRED [None]
  - STOMACH DISCOMFORT [None]
  - VOMITING [None]
